FAERS Safety Report 8391172-5 (Version None)
Quarter: 2012Q2

REPORT INFORMATION
  Report Type: 
  Country: None (occurrence: None)
  Receive Date: 20120529
  Receipt Date: 20120515
  Transmission Date: 20120825
  Serious: Yes (Other)
  Sender: FDA-Public Use
  Company Number: JP-ELI_LILLY_AND_COMPANY-JP201204008924

PATIENT
  Age: 13 Year
  Sex: Male

DRUGS (4)
  1. STRATTERA [Suspect]
     Dosage: 40 MG, UNK
     Route: 048
     Dates: start: 20120301, end: 20120401
  2. STRATTERA [Suspect]
     Dosage: 70 MG, UNK
     Route: 048
     Dates: start: 20120401
  3. STRATTERA [Suspect]
     Indication: ATTENTION DEFICIT/HYPERACTIVITY DISORDER
     Dosage: 20 MG, UNK
     Route: 048
     Dates: start: 20120201, end: 20120301
  4. ABILIFY [Concomitant]
     Indication: TIC
     Dosage: 3 MG, UNK
     Route: 048

REACTIONS (2)
  - EPILEPSY [None]
  - DIZZINESS [None]
